FAERS Safety Report 7012722-7 (Version None)
Quarter: 2010Q3

REPORT INFORMATION
  Report Type: 
  Country: None (occurrence: None)
  Receive Date: 20100914
  Receipt Date: 20100315
  Transmission Date: 20110219
  Serious: Yes (Other)
  Sender: FDA-Public Use
  Company Number: 2010009800

PATIENT
  Age: 75 Year
  Sex: Female
  Weight: 107 kg

DRUGS (9)
  1. GLIPIZIDE [Suspect]
     Indication: DIABETES MELLITUS
     Dosage: 5 MG, 2X/DAY, ORAL
     Route: 048
     Dates: start: 20070731
  2. ACTOS [Concomitant]
  3. AMLODIPINE [Concomitant]
  4. XALATAN [Concomitant]
  5. LISINOPRIL [Concomitant]
  6. HYDROCHLOROTHIAZIDE [Concomitant]
  7. DORZOLAMIDE HYDROCHLORIDE/TIMOLOL MALEATE (DORZOLAMIDE HYDROCHLORIDE, [Concomitant]
  8. WELCHOL [Concomitant]
  9. VALSARTAN [Concomitant]

REACTIONS (1)
  - DIABETES MELLITUS INADEQUATE CONTROL [None]
